FAERS Safety Report 7551167-8 (Version None)
Quarter: 2011Q2

REPORT INFORMATION
  Report Type: 
  Country: None (occurrence: None)
  Receive Date: 20110616
  Receipt Date: 20110602
  Transmission Date: 20111010
  Serious: Yes (Hospitalization)
  Sender: FDA-Public Use
  Company Number: PHHY2011US49586

PATIENT
  Sex: Female

DRUGS (1)
  1. GLEEVEC [Suspect]
     Indication: GASTRIC NEOPLASM
     Dosage: 400 MG, DAILY
     Route: 048

REACTIONS (4)
  - OEDEMA PERIPHERAL [None]
  - PULMONARY FUNCTION TEST DECREASED [None]
  - BLOOD PRESSURE DECREASED [None]
  - RASH ERYTHEMATOUS [None]
